FAERS Safety Report 8953814 (Version 1)
Quarter: 2012Q4

REPORT INFORMATION
  Report Type: 
  Country: DE (occurrence: DE)
  Receive Date: 20121206
  Receipt Date: 20121206
  Transmission Date: 20130627
  Serious: Yes (Hospitalization)
  Sender: FDA-Public Use
  Company Number: DE-ABBOTT-12P-062-1014406-00

PATIENT
  Sex: Female

DRUGS (1)
  1. INFLUENZA VIRUS VACCINE [Suspect]
     Indication: IMMUNISATION
     Dosage: 1 separate dose
     Dates: start: 20121010

REACTIONS (7)
  - Headache [Not Recovered/Not Resolved]
  - Myalgia [Not Recovered/Not Resolved]
  - Diarrhoea [Not Recovered/Not Resolved]
  - Pyrexia [Not Recovered/Not Resolved]
  - Deafness [Not Recovered/Not Resolved]
  - Inflammatory marker increased [Not Recovered/Not Resolved]
  - Cogan^s syndrome [Not Recovered/Not Resolved]
